FAERS Safety Report 7318655-0 (Version None)
Quarter: 2011Q1

REPORT INFORMATION
  Report Type: 
  Country: None (occurrence: None)
  Receive Date: 20110223
  Receipt Date: 20110223
  Transmission Date: 20110831
  Serious: No
  Sender: FDA-Public Use
  Company Number: None

PATIENT
  Age: 25 Year
  Sex: Female

DRUGS (20)
  1. ATORVASTATIN [Concomitant]
  2. VITAMIN E [Concomitant]
  3. MAGNESIUM OXIDE [Concomitant]
  4. PREDNISONE [Concomitant]
  5. SERTRALINE HYDROCHLORIDE [Concomitant]
  6. CALCIUM CARBONATE [Concomitant]
  7. LANTUS [Concomitant]
  8. IMITREX [Concomitant]
  9. VALSARTAN [Suspect]
  10. ACETAMINOPHEN [Concomitant]
  11. NOVOLOG [Concomitant]
  12. MYCOPHENOLIC ACID [Concomitant]
  13. CREON [Concomitant]
  14. BACTRIM [Concomitant]
  15. LANSOPRAZOLE [Concomitant]
  16. LISINOPRIL [Concomitant]
  17. ACYCLOVIR [Concomitant]
  18. LOESTRIN 1.5/30 [Concomitant]
  19. MULTI-VITAMIN [Concomitant]
  20. TACROLIMUS [Concomitant]

REACTIONS (1)
  - TREMOR [None]
